FAERS Safety Report 6363863-9 (Version None)
Quarter: 2009Q3

REPORT INFORMATION
  Report Type: 
  Country: None (occurrence: None)
  Receive Date: 20090919
  Receipt Date: 20090707
  Transmission Date: 20100115
  Serious: No
  Sender: FDA-Public Use
  Company Number: US-ABBOTT-09P-163-0584398-00

PATIENT
  Sex: Female
  Weight: 56.75 kg

DRUGS (6)
  1. HUMIRA [Suspect]
     Indication: CROHN'S DISEASE
     Dates: start: 20090201, end: 20090201
  2. HUMIRA [Suspect]
     Dates: start: 20090201, end: 20090201
  3. HUMIRA [Suspect]
  4. UNKNOWN BIRTH CONTROL MEDICATION [Concomitant]
     Indication: CONTRACEPTION
  5. IRON [Concomitant]
     Indication: ANAEMIA
  6. CELEXA [Concomitant]
     Indication: DEPRESSION

REACTIONS (1)
  - DRUG DOSE OMISSION [None]
